FAERS Safety Report 6452877-6 (Version None)
Quarter: 2009Q4

REPORT INFORMATION
  Report Type: 
  Country: None (occurrence: None)
  Receive Date: 20091124
  Receipt Date: 20090311
  Transmission Date: 20100525
  Serious: Yes (Hospitalization)
  Sender: FDA-Public Use
  Company Number: PR-ABBOTT-09P-131-0561956-00

PATIENT
  Sex: Male
  Weight: 90.8 kg

DRUGS (1)
  1. TRICOR [Suspect]
     Indication: HYPERTRIGLYCERIDAEMIA
     Route: 048
     Dates: start: 20090307, end: 20090308

REACTIONS (2)
  - ABDOMINAL PAIN UPPER [None]
  - VOMITING [None]
